FAERS Safety Report 14753228 (Version 1)
Quarter: 2018Q2

REPORT INFORMATION
  Report Type: Spontaneous
  Country: DE (occurrence: DE)
  Receive Date: 20180412
  Receipt Date: 20180412
  Transmission Date: 20180711
  Serious: Yes (Other)
  Sender: FDA-Public Use
  Company Number: DE-FRESENIUS KABI-FK201804169

PATIENT
  Sex: Male

DRUGS (1)
  1. AMIKACIN FRESENIUS (NOT SPECIFIED) [Suspect]
     Active Substance: AMIKACIN
     Indication: ACINETOBACTER INFECTION
     Route: 042

REACTIONS (1)
  - Partial seizures [Not Recovered/Not Resolved]

NARRATIVE: CASE EVENT DATE: 201804
